FAERS Safety Report 10659858 (Version 1)
Quarter: 2014Q4

REPORT INFORMATION
  Report Type: Spontaneous
  Country: US (occurrence: US)
  Receive Date: 20141217
  Receipt Date: 20141217
  Transmission Date: 20150529
  Serious: No
  Sender: FDA-Public Use
  Company Number: US-SA-2014SA160365

PATIENT
  Age: 33 Year
  Sex: Female

DRUGS (1)
  1. THYROGEN [Suspect]
     Active Substance: THYROTROPIN ALFA
     Indication: DIAGNOSTIC PROCEDURE
     Route: 030
     Dates: start: 20141117

REACTIONS (2)
  - Nausea [Not Recovered/Not Resolved]
  - Rash [Recovered/Resolved]

NARRATIVE: CASE EVENT DATE: 20141117
